FAERS Safety Report 6243004-9 (Version None)
Quarter: 2009Q2

REPORT INFORMATION
  Report Type: 
  Country: None (occurrence: None)
  Receive Date: 20090624
  Receipt Date: 20090624
  Transmission Date: 20091009
  Serious: Yes (Other)
  Sender: FDA-Public Use
  Company Number: US-PFIZER INC-2009196045

PATIENT
  Sex: Male

DRUGS (4)
  1. LYRICA [Suspect]
     Indication: NEUROPATHY PERIPHERAL
     Dosage: 50 MG, 2X/DAY
     Dates: start: 20071201
  2. LYRICA [Suspect]
     Indication: RHEUMATOID ARTHRITIS
  3. PERCODAN-DEMI [Suspect]
     Indication: PAIN
  4. NITROGLYCERIN [Concomitant]
     Dosage: UNK

REACTIONS (4)
  - DRUG ABUSE [None]
  - FALL [None]
  - OPEN FRACTURE [None]
  - URINARY BLADDER POLYP [None]
